FAERS Safety Report 6914155-8 (Version None)
Quarter: 2010Q3

REPORT INFORMATION
  Report Type: 
  Country: None (occurrence: None)
  Receive Date: 20100809
  Receipt Date: 20100728
  Transmission Date: 20110219
  Serious: Yes (Other)
  Sender: FDA-Public Use
  Company Number: JP-PFIZER INC-2010089929

PATIENT
  Age: 80 Year
  Sex: Male
  Weight: 54 kg

DRUGS (2)
  1. ZITHROMAC [Suspect]
     Indication: ACUTE SINUSITIS
     Dosage: 250 MG, 1X/DAY
     Route: 048
     Dates: start: 20100703, end: 20100704
  2. MAGNESIUM OXIDE [Concomitant]
     Indication: CONSTIPATION
     Dosage: 2 G, UNK
     Route: 048

REACTIONS (1)
  - VARICELLA [None]
